FAERS Safety Report 4364691-6 (Version None)
Quarter: 2004Q2

REPORT INFORMATION
  Report Type: 
  Country: None (occurrence: None)
  Receive Date: 20040521
  Receipt Date: 20040514
  Transmission Date: 20050107
  Serious: Yes (Hospitalization)
  Sender: FDA-Public Use
  Company Number: 200403796

PATIENT
  Age: 7 Year
  Sex: Male
  Weight: 21 kg

DRUGS (10)
  1. TYLENOL [Suspect]
     Indication: PAIN
     Dosage: 7800 MG TOTAL
     Dates: start: 20040510, end: 20040512
  2. TYLENOL [Suspect]
     Indication: PYREXIA
     Dosage: 7800 MG TOTAL
     Dates: start: 20040510, end: 20040512
  3. TYLENOL [Suspect]
     Indication: PAIN
     Dosage: Q3H
     Dates: start: 20040510, end: 20040512
  4. TYLENOL [Suspect]
     Indication: PYREXIA
     Dosage: Q3H
     Dates: start: 20040510, end: 20040512
  5. MOTRIN [Suspect]
     Indication: PAIN
     Dosage: 100 MG Q3H
     Dates: start: 20040510, end: 20040512
  6. MOTRIN [Suspect]
     Indication: PYREXIA
     Dosage: 100 MG Q3H
     Dates: start: 20040510, end: 20040512
  7. FLOVENT [Concomitant]
  8. ALBUTEROL [Concomitant]
  9. FORADIL [Concomitant]
  10. SEREVENT [Concomitant]

REACTIONS (3)
  - ACCIDENTAL OVERDOSE [None]
  - NAUSEA [None]
  - PHARMACEUTICAL PRODUCT COMPLAINT [None]
